FAERS Safety Report 18152322 (Version 1)
Quarter: 2020Q3

REPORT INFORMATION
  Report Type: Spontaneous
  Country: SG (occurrence: SG)
  Receive Date: 20200814
  Receipt Date: 20200814
  Transmission Date: 20201104
  Serious: Yes (Death, Other)
  Sender: FDA-Public Use
  Company Number: SG-BAYER-2020-168526

PATIENT
  Age: 14 Year
  Sex: Male

DRUGS (5)
  1. SELITRECTINIB. [Suspect]
     Active Substance: SELITRECTINIB
     Indication: SOFT TISSUE SARCOMA
     Dosage: 50 MG, QD FOR 14 DAYS
  2. SELITRECTINIB. [Suspect]
     Active Substance: SELITRECTINIB
     Indication: SOFT TISSUE SARCOMA
     Dosage: 75 MG, BID
  3. LAROTRECTINIB [Suspect]
     Active Substance: LAROTRECTINIB
     Indication: SOFT TISSUE SARCOMA
     Dosage: 100 MG, BID
  4. SELITRECTINIB. [Suspect]
     Active Substance: SELITRECTINIB
     Indication: SOFT TISSUE SARCOMA
     Dosage: 50 MG, BID FOR 14 DAYS
  5. MORPHINE [Concomitant]
     Active Substance: MORPHINE
     Route: 048

REACTIONS (2)
  - Soft tissue sarcoma [Fatal]
  - Drug resistance [None]
